FAERS Safety Report 4273697-7 (Version None)
Quarter: 2004Q1

REPORT INFORMATION
  Report Type: 
  Country: None (occurrence: None)
  Receive Date: 20040114
  Receipt Date: 20031229
  Transmission Date: 20041129
  Serious: No
  Sender: FDA-Public Use
  Company Number: 2004PK00006

PATIENT
  Age: 63 Year
  Sex: Female
  Weight: 40 kg

DRUGS (14)
  1. ANTRA [Suspect]
     Indication: DYSPEPSIA
     Dosage: 40 MG DAILY PO
     Route: 048
     Dates: start: 20030825, end: 20030924
  2. NEXIUM [Suspect]
     Indication: DYSPEPSIA
     Dosage: 40 MG DAILY
     Dates: start: 20030925, end: 20031202
  3. ACETAMINOPHEN [Suspect]
     Indication: PAIN
     Dosage: 1500 MG DAILY
     Dates: end: 20030916
  4. REMERON [Suspect]
     Indication: DEPRESSION
     Dosage: 30 MG DAILY
     Dates: start: 20030825, end: 20030916
  5. HALDOL [Suspect]
     Indication: ANXIETY
     Dosage: 1.5 MG DAILY
     Dates: start: 20031013, end: 20031029
  6. XANAX [Concomitant]
  7. MIDAZOLAM HCL [Concomitant]
  8. MORPHINE [Concomitant]
  9. THYROID TAB [Concomitant]
  10. LOXOBERON [Concomitant]
  11. MYCOSTATIN [Concomitant]
  12. FERRUM HAUSMANN [Concomitant]
  13. BISOLVON [Concomitant]
  14. NEURODOL [Concomitant]

REACTIONS (1)
  - CHOLESTASIS [None]
